FAERS Safety Report 6814290-9 (Version None)
Quarter: 2010Q3

REPORT INFORMATION
  Report Type: 
  Country: None (occurrence: None)
  Receive Date: 20100702
  Receipt Date: 20100624
  Transmission Date: 20110219
  Serious: Yes (Other)
  Sender: FDA-Public Use
  Company Number: AT-JNJFOC-20100607321

PATIENT
  Age: 26 Year
  Sex: Female

DRUGS (2)
  1. CILEST [Suspect]
     Indication: CONTRACEPTION
     Route: 065
  2. VENLAFAXINE HCL [Concomitant]
     Route: 065

REACTIONS (8)
  - BLOOD PROLACTIN INCREASED [None]
  - BREAST DISCOMFORT [None]
  - GALACTORRHOEA [None]
  - GASTRIC DISORDER [None]
  - MIGRAINE WITHOUT AURA [None]
  - NIPPLE PAIN [None]
  - VAGINAL HAEMORRHAGE [None]
  - VISUAL ACUITY REDUCED [None]
